FAERS Safety Report 10565183 (Version 1)
Quarter: 2014Q4

REPORT INFORMATION
  Report Type: Spontaneous
  Country: US (occurrence: None)
  Receive Date: 20141104
  Receipt Date: 20141104
  Transmission Date: 20150529
  Serious: Yes (Other)
  Sender: FDA-Public Use
  Company Number: None

PATIENT
  Age: 80 Year
  Sex: Male
  Weight: 95.26 kg

DRUGS (1)
  1. LEVOFLOXACIN. [Suspect]
     Active Substance: LEVOFLOXACIN
     Indication: PULMONARY CONGESTION
     Dosage: 500 MG, 1 DAILY 7 DAYS

REACTIONS (2)
  - Arthropathy [None]
  - Tendon disorder [None]

NARRATIVE: CASE EVENT DATE: 20141007
